FAERS Safety Report 7638722-1 (Version None)
Quarter: 2011Q3

REPORT INFORMATION
  Report Type: 
  Country: None (occurrence: None)
  Receive Date: 20110727
  Receipt Date: 20110721
  Transmission Date: 20111222
  Serious: Yes (Life-Threatening, Hospitalization)
  Sender: FDA-Public Use
  Company Number: DE-ELI_LILLY_AND_COMPANY-DE200610004023

PATIENT
  Sex: Female
  Weight: 70 kg

DRUGS (5)
  1. GEMCITABINE HYDROCHLORIDE [Suspect]
     Indication: BREAST CANCER
     Dosage: 1900 MG, UNK
     Route: 042
     Dates: start: 20060928
  2. DOCETAXEL [Suspect]
     Indication: BREAST CANCER
     Dosage: 143 MG, UNK
     Route: 042
     Dates: start: 20060928, end: 20060928
  3. FORTECORTIN  /USA/ [Concomitant]
     Dates: start: 20061005
  4. KEVATRIL [Concomitant]
     Dates: start: 20060928
  5. MESNA [Concomitant]
     Dosage: 10 MG, UNK
     Route: 042
     Dates: start: 20060926

REACTIONS (2)
  - PNEUMONIA [None]
  - STAPHYLOCOCCAL SEPSIS [None]
